FAERS Safety Report 15582557 (Version 1)
Quarter: 2018Q4

REPORT INFORMATION
  Report Type: Spontaneous
  Country: ES (occurrence: ES)
  Receive Date: 20181103
  Receipt Date: 20181103
  Transmission Date: 20190205
  Serious: Yes (Hospitalization, Other)
  Sender: FDA-Public Use
  Company Number: ES-ACCORD-090918

PATIENT
  Age: 86 Year
  Sex: Female

DRUGS (2)
  1. FUROSEMIDE. [Suspect]
     Active Substance: FUROSEMIDE
     Indication: FLUID OVERLOAD
     Dosage: STRENGTH: 40 MG
     Route: 048
     Dates: start: 20170421, end: 20171129
  2. EDEMOX [Interacting]
     Active Substance: ACETAZOLAMIDE
     Indication: FLUID OVERLOAD
     Dosage: STRENGTH: 250 MG
     Dates: start: 20170421, end: 20170614

REACTIONS (2)
  - Acute kidney injury [Recovered/Resolved]
  - Drug interaction [Unknown]

NARRATIVE: CASE EVENT DATE: 20170613
